FAERS Safety Report 8209404-2 (Version None)
Quarter: 2012Q1

REPORT INFORMATION
  Report Type: 
  Country: None (occurrence: None)
  Receive Date: 20120227
  Receipt Date: 20111109
  Transmission Date: 20120608
  Serious: No
  Sender: FDA-Public Use
  Company Number: 342728

PATIENT

DRUGS (3)
  1. VICTOZA [Suspect]
     Indication: TYPE 2 DIABETES MELLITUS
     Dosage: 0.6;1.2 MG, QD,SUBCUTANEOUS
     Route: 058
     Dates: start: 20111109, end: 20111115
  2. VICTOZA [Suspect]
     Indication: TYPE 2 DIABETES MELLITUS
     Dosage: 0.6;1.2 MG, QD,SUBCUTANEOUS
     Route: 058
     Dates: start: 20111013, end: 20111027
  3. VICTOZA [Suspect]
     Indication: TYPE 2 DIABETES MELLITUS
     Dosage: 0.6;1.2 MG, QD,SUBCUTANEOUS
     Route: 058
     Dates: start: 20111116

REACTIONS (3)
  - BLOOD GLUCOSE ABNORMAL [None]
  - NAUSEA [None]
  - DIZZINESS [None]
